FAERS Safety Report 9262471 (Version 2)
Quarter: 2013Q4

REPORT INFORMATION
  Report Type: Report from Study
  Country: CA (occurrence: CA)
  Receive Date: 20130430
  Receipt Date: 20131107
  Transmission Date: 20140711
  Serious: Yes (Other)
  Sender: FDA-Public Use
  Company Number: CA-JNJFOC-20130216093

PATIENT
  Age: 53 Year
  Sex: Female
  Weight: 76 kg

DRUGS (17)
  1. REMICADE [Suspect]
     Indication: PSORIATIC ARTHROPATHY
     Route: 042
     Dates: start: 20120925
  2. REMICADE [Suspect]
     Indication: PSORIATIC ARTHROPATHY
     Route: 042
     Dates: end: 201308
  3. REMICADE [Suspect]
     Indication: PSORIATIC ARTHROPATHY
     Route: 042
     Dates: start: 20130422
  4. REMICADE [Suspect]
     Indication: PSORIATIC ARTHROPATHY
     Route: 042
     Dates: start: 20130226
  5. REMICADE [Suspect]
     Indication: PSORIASIS
     Route: 042
     Dates: start: 20130422
  6. REMICADE [Suspect]
     Indication: PSORIASIS
     Route: 042
     Dates: end: 201308
  7. REMICADE [Suspect]
     Indication: PSORIASIS
     Route: 042
     Dates: start: 20130226
  8. REMICADE [Suspect]
     Indication: PSORIASIS
     Route: 042
     Dates: start: 20120925
  9. LIPIDIL [Concomitant]
     Indication: BLOOD CHOLESTEROL INCREASED
     Dosage: NIGHTLY
     Route: 065
  10. GRAVOL [Concomitant]
     Indication: PREMEDICATION
     Route: 048
     Dates: start: 20130422
  11. BENADRYL [Concomitant]
     Indication: PREMEDICATION
     Route: 048
     Dates: start: 20130422
  12. METFORMIN [Concomitant]
     Indication: DIABETES MELLITUS
     Dosage: 2 TABLETS
     Route: 048
  13. GLICLAZIDE [Concomitant]
     Indication: DIABETES MELLITUS
     Route: 065
  14. RAMIPRIL [Concomitant]
     Indication: BLOOD PRESSURE INCREASED
     Route: 065
  15. BABY ASA [Concomitant]
     Indication: CARDIAC DISORDER
     Route: 065
  16. HUMULIN INSULIN [Concomitant]
     Indication: DIABETES MELLITUS
     Dosage: 60 UNITS, 18 YEARS
     Route: 065
  17. APO HYDRO [Concomitant]
     Indication: BLOOD PRESSURE INCREASED
     Route: 065

REACTIONS (6)
  - Hypotension [Recovered/Resolved]
  - Infusion related reaction [Recovering/Resolving]
  - Vomiting [Recovered/Resolved]
  - Cold sweat [Recovering/Resolving]
  - Hyperhidrosis [Recovering/Resolving]
  - Pallor [Recovering/Resolving]
